FAERS Safety Report 8361712-0 (Version None)
Quarter: 2012Q2

REPORT INFORMATION
  Report Type: 
  Country: None (occurrence: None)
  Receive Date: 20120515
  Receipt Date: 20120508
  Transmission Date: 20120825
  Serious: Yes (Death, Hospitalization)
  Sender: FDA-Public Use
  Company Number: CH-BAXTER-2012BAX002062

PATIENT
  Sex: Male

DRUGS (1)
  1. PHYSIONEAL 40 2.27% [Suspect]
     Indication: PERITONEAL DIALYSIS
     Route: 033
     Dates: start: 20120112

REACTIONS (2)
  - DEATH [None]
  - DRUG ADMINISTRATION ERROR [None]
